FAERS Safety Report 6958533-X (Version None)
Quarter: 2010Q3

REPORT INFORMATION
  Report Type: 
  Country: None (occurrence: None)
  Receive Date: 20100831
  Receipt Date: 20100823
  Transmission Date: 20110219
  Serious: Yes (Other)
  Sender: FDA-Public Use
  Company Number: JP-ROCHE-723155

PATIENT
  Age: 9 Year
  Sex: Male
  Weight: 26 kg

DRUGS (1)
  1. TAMIFLU [Suspect]
     Dosage: DRUG:TAMIFLU DRY SYRUP 3%
     Route: 048
     Dates: start: 20091004, end: 20091004

REACTIONS (1)
  - ENCEPHALOPATHY [None]
